FAERS Safety Report 6706676-8 (Version None)
Quarter: 2010Q2

REPORT INFORMATION
  Report Type: 
  Country: None (occurrence: None)
  Receive Date: 20100503
  Receipt Date: 20100422
  Transmission Date: 20101027
  Serious: Yes (Other)
  Sender: FDA-Public Use
  Company Number: FR-ASTRAZENECA-2010SE18562

PATIENT
  Age: 42 Year
  Sex: Male

DRUGS (3)
  1. NEXIUM [Suspect]
     Indication: GASTROOESOPHAGEAL REFLUX DISEASE
     Dosage: 20 OR 40 MG, ONE TAB DAILY
     Route: 048
     Dates: start: 20050101, end: 20070101
  2. NEXIUM [Suspect]
     Dosage: 20 OR 40 MG, ONE TAB DAILY
     Route: 048
     Dates: start: 20070101, end: 20070101
  3. AERIUS [Concomitant]
     Indication: RHINITIS ALLERGIC

REACTIONS (1)
  - RHABDOMYOLYSIS [None]
